FAERS Safety Report 5345786-7 (Version None)
Quarter: 2007Q2

REPORT INFORMATION
  Report Type: 
  Country: None (occurrence: None)
  Receive Date: 20070605
  Receipt Date: 20070521
  Transmission Date: 20071010
  Serious: Yes (Hospitalization)
  Sender: FDA-Public Use
  Company Number: CH-ASTRAZENECA-2007PK01071

PATIENT
  Age: 23 Year
  Sex: Female
  Weight: 49 kg

DRUGS (5)
  1. SEROQUEL [Interacting]
     Indication: HISTRIONIC PERSONALITY DISORDER
     Route: 048
     Dates: start: 20070319
  2. EFFEXOR [Suspect]
     Indication: HISTRIONIC PERSONALITY DISORDER
     Route: 048
     Dates: start: 20070323, end: 20070326
  3. EFFEXOR [Suspect]
     Route: 048
     Dates: start: 20070327
  4. REMERON [Suspect]
     Indication: HISTRIONIC PERSONALITY DISORDER
     Route: 048
     Dates: start: 20070316
  5. LORAZEPAM [Suspect]
     Indication: HISTRIONIC PERSONALITY DISORDER
     Route: 048
     Dates: start: 20070319, end: 20070417

REACTIONS (1)
  - FALL [None]
